FAERS Safety Report 9109587 (Version 3)
Quarter: 2013Q3

REPORT INFORMATION
  Report Type: Spontaneous
  Country: JP (occurrence: JP)
  Receive Date: 20130222
  Receipt Date: 20130823
  Transmission Date: 20140515
  Serious: Yes (Death, Life-Threatening, Hospitalization, Other)
  Sender: FDA-Public Use
  Company Number: JP-MILLENNIUM PHARMACEUTICALS, INC.-2013-01450

PATIENT
  Sex: 0

DRUGS (2)
  1. VELCADE [Suspect]
     Indication: AMYLOIDOSIS
     Dosage: 2.14 MG, UNK
     Route: 058
     Dates: start: 20130111, end: 20130211
  2. DEXAMETHASONE [Suspect]
     Indication: AMYLOIDOSIS
     Dosage: 39.6 MG, UNK
     Route: 042
     Dates: start: 20130111, end: 20130211

REACTIONS (9)
  - Congestive cardiomyopathy [Fatal]
  - Cardiac arrest [Fatal]
  - Respiratory failure [Not Recovered/Not Resolved]
  - Circulatory collapse [Not Recovered/Not Resolved]
  - Renal failure [Not Recovered/Not Resolved]
  - Fatigue [Unknown]
  - Decreased appetite [Unknown]
  - Abdominal distension [Unknown]
  - Off label use [Unknown]
